FAERS Safety Report 8755891 (Version 2)
Quarter: 2012Q4

REPORT INFORMATION
  Report Type: 
  Country: US (occurrence: US)
  Receive Date: 20120828
  Receipt Date: 20121029
  Transmission Date: 20130627
  Serious: Yes (Other)
  Sender: FDA-Public Use
  Company Number: US-ROCHE-792194

PATIENT
  Age: 20 Year
  Sex: Female
  Weight: 56.75 kg

DRUGS (13)
  1. ACCUTANE [Suspect]
     Indication: ACNE
     Dosage: 40mg - 80mg
     Route: 048
  2. ACCUTANE [Suspect]
     Route: 065
  3. ACCUTANE [Suspect]
     Route: 065
     Dates: start: 20040519, end: 20041012
  4. AMNESTEEM [Suspect]
     Indication: ACNE
     Dosage: 60mg-80mg
     Route: 048
     Dates: start: 200406, end: 200410
  5. AMOXICILLIN [Concomitant]
  6. ANUSOL (BELGIUM) [Concomitant]
  7. ANUCORT-HC [Concomitant]
  8. DIFLUCAN [Concomitant]
  9. MIRALAX [Concomitant]
  10. ORTHO NOS [Concomitant]
  11. TRIAMCINOLON [Concomitant]
  12. CEPHALEXIN [Concomitant]
  13. VANIQA [Concomitant]

REACTIONS (12)
  - Colitis ulcerative [Unknown]
  - Inflammatory bowel disease [Unknown]
  - Crohn^s disease [Unknown]
  - Stress [Unknown]
  - Depression [Unknown]
  - Blood cholesterol increased [Unknown]
  - Blood triglycerides increased [Unknown]
  - Arthralgia [Unknown]
  - Rash [Unknown]
  - Chapped lips [Unknown]
  - Dry skin [Unknown]
  - Dry eye [Unknown]
